FAERS Safety Report 6424544-6 (Version None)
Quarter: 2009Q4

REPORT INFORMATION
  Report Type: 
  Country: None (occurrence: None)
  Receive Date: 20091029
  Receipt Date: 20091013
  Transmission Date: 20100525
  Serious: Yes (Hospitalization)
  Sender: FDA-Public Use
  Company Number: DSA_41871_2009

PATIENT
  Age: 56 Year
  Sex: Female

DRUGS (9)
  1. DILTIAZEM [Suspect]
     Indication: DRUG USE FOR UNKNOWN INDICATION
     Dosage: (DF ORAL)
     Route: 048
     Dates: end: 20081107
  2. CLOZARIL [Suspect]
     Indication: SCHIZOPHRENIA
     Dosage: (DF ORAL)
  3. ASPIRIN [Concomitant]
  4. ATORVASTATIN [Concomitant]
  5. DIAZEPAM [Concomitant]
  6. DICLOFENAC [Concomitant]
  7. HYOSCINE HBR HYT [Concomitant]
  8. ACETAMINOPHEN [Concomitant]
  9. VALPROATE SODIUM [Concomitant]

REACTIONS (2)
  - ORTHOSTATIC HYPOTENSION [None]
  - SYNCOPE [None]
